FAERS Safety Report 6076486-6 (Version None)
Quarter: 2009Q1

REPORT INFORMATION
  Report Type: 
  Country: None (occurrence: None)
  Receive Date: 20090211
  Receipt Date: 20090211
  Transmission Date: 20090719
  Serious: No
  Sender: FDA-Public Use
  Company Number: None

PATIENT
  Sex: Female
  Weight: 84.8226 kg

DRUGS (1)
  1. FOSAMAX [Suspect]
     Indication: OSTEOPOROSIS
     Dosage: ONCE PO QWK
     Route: 048
     Dates: start: 20061204, end: 20081219

REACTIONS (2)
  - HAIR TEXTURE ABNORMAL [None]
  - TRICHORRHEXIS [None]
